FAERS Safety Report 16863028 (Version 1)
Quarter: 2019Q3

REPORT INFORMATION
  Report Type: Spontaneous
  Country: CN (occurrence: CN)
  Receive Date: 20190927
  Receipt Date: 20190927
  Transmission Date: 20191005
  Serious: Yes (Hospitalization)
  Sender: FDA-Public Use
  Company Number: CN-JNJFOC-20190926998

PATIENT
  Age: 35 Year
  Sex: Female

DRUGS (2)
  1. SPORANOX [Suspect]
     Active Substance: ITRACONAZOLE
     Indication: FUNGAL INFECTION
     Route: 048
     Dates: start: 20190828, end: 20190903
  2. COMPOUND GLYCYRRHIZIN [Concomitant]
     Indication: PROPHYLAXIS
     Route: 048
     Dates: start: 20190828, end: 20190903

REACTIONS (2)
  - White blood cell count decreased [Recovering/Resolving]
  - Haemorrhoids [Unknown]

NARRATIVE: CASE EVENT DATE: 2019
